FAERS Safety Report 16565694 (Version 12)
Quarter: 2021Q1

REPORT INFORMATION
  Report Type: Spontaneous
  Country: US (occurrence: US)
  Receive Date: 20190712
  Receipt Date: 20210107
  Transmission Date: 20210419
  Serious: Yes (Other)
  Sender: FDA-Public Use
  Company Number: US-PFIZER INC-2019296517

PATIENT
  Age: 55 Year
  Sex: Male
  Weight: 114 kg

DRUGS (2)
  1. LYRICA [Suspect]
     Active Substance: PREGABALIN
     Indication: NEURALGIA
  2. LYRICA [Suspect]
     Active Substance: PREGABALIN
     Indication: NERVE INJURY
     Dosage: 75 MG, 3X/DAY
     Route: 048
     Dates: start: 201407

REACTIONS (5)
  - Fatigue [Unknown]
  - Brain injury [Unknown]
  - Drug ineffective [Recovered/Resolved]
  - Accident [Unknown]
  - Back injury [Unknown]
